FAERS Safety Report 25623646 (Version 1)
Quarter: 2025Q3

REPORT INFORMATION
  Report Type: Spontaneous
  Country: AU (occurrence: AU)
  Receive Date: 20250730
  Receipt Date: 20250730
  Transmission Date: 20251021
  Serious: Yes (Hospitalization, Disabling, Other)
  Sender: MEDEXUS PHARMA
  Company Number: AU-MEDEXUS PHARMA, INC.-2025MED00221

PATIENT
  Age: 43 Year
  Sex: Female

DRUGS (1)
  1. METHOTREXATE [Suspect]
     Active Substance: METHOTREXATE
     Indication: Rheumatoid arthritis
     Dosage: 20 MG, 1X/WEEK

REACTIONS (2)
  - Paraneoplastic encephalomyelitis [Recovering/Resolving]
  - Lymphoproliferative disorder [Recovered/Resolved]
